FAERS Safety Report 8448641-9 (Version None)
Quarter: 2012Q2

REPORT INFORMATION
  Report Type: 
  Country: None (occurrence: None)
  Receive Date: 20120619
  Receipt Date: 20120611
  Transmission Date: 20120825
  Serious: Yes (Other)
  Sender: FDA-Public Use
  Company Number: FR-ROXANE LABORATORIES, INC.-2011-RO-00447RO

PATIENT
  Age: 74 Year
  Sex: Female
  Weight: 60 kg

DRUGS (5)
  1. ADRENALIN IN OIL INJ [Suspect]
     Indication: NERVE BLOCK
  2. FLECAINIDE ACETATE [Suspect]
     Indication: ATRIAL FIBRILLATION
  3. LIDOCAINE [Suspect]
     Indication: NERVE BLOCK
     Dosage: 400 MG
  4. LIDOCAINE [Suspect]
  5. FLECAINIDE ACETATE [Suspect]
     Indication: ATRIAL TACHYCARDIA

REACTIONS (1)
  - TOXICITY TO VARIOUS AGENTS [None]
